FAERS Safety Report 12140305 (Version 1)
Quarter: 2016Q1

REPORT INFORMATION
  Report Type: Spontaneous
  Country: US (occurrence: US)
  Receive Date: 20160303
  Receipt Date: 20160303
  Transmission Date: 20160526
  Serious: No
  Sender: FDA-Public Use
  Company Number: US-PFIZER INC-2016103713

PATIENT
  Age: 55 Year
  Sex: Female
  Weight: 64 kg

DRUGS (6)
  1. LYRICA [Interacting]
     Active Substance: PREGABALIN
     Dosage: UNK UNK, 1X/DAY
  2. ATORVASTATIN [Concomitant]
     Active Substance: ATORVASTATIN
     Indication: SLEEP DISORDER
     Dosage: 20 MG, 1X/DAY
  3. CELECOXIB. [Concomitant]
     Active Substance: CELECOXIB
     Indication: ARTHRITIS
     Dosage: 200 MG, 2X/DAY
  4. ATORVASTATIN [Concomitant]
     Active Substance: ATORVASTATIN
     Indication: MUSCLE RELAXANT THERAPY
  5. LYRICA [Suspect]
     Active Substance: PREGABALIN
     Indication: FIBROMYALGIA
     Dosage: 150 MG, 3X/DAY
     Dates: start: 2011
  6. LYRICA [Interacting]
     Active Substance: PREGABALIN
     Indication: BACK DISORDER
     Dosage: UNK UNK, 2X/DAY

REACTIONS (6)
  - Amnesia [Unknown]
  - Speech disorder [Unknown]
  - Chronic obstructive pulmonary disease [Not Recovered/Not Resolved]
  - Drug interaction [Unknown]
  - Intentional underdose [Unknown]
  - Dry mouth [Unknown]
